FAERS Safety Report 21319940 (Version 1)
Quarter: 2022Q3

REPORT INFORMATION
  Report Type: Spontaneous
  Country: US (occurrence: US)
  Receive Date: 20220911
  Receipt Date: 20220911
  Transmission Date: 20221027
  Serious: No
  Sender: FDA-Public Use
  Company Number: US-SA-SAC20220906000225

PATIENT
  Sex: Female

DRUGS (1)
  1. DUPIXENT [Suspect]
     Active Substance: DUPILUMAB
     Indication: Asthma
     Dosage: 300 MG, QOW
     Route: 058
     Dates: start: 202002

REACTIONS (13)
  - Vulvovaginal mycotic infection [Unknown]
  - Fungal infection [Unknown]
  - Condition aggravated [Unknown]
  - Stomatitis [Unknown]
  - Hordeolum [Unknown]
  - Mass [Unknown]
  - Nausea [Unknown]
  - Pain [Unknown]
  - Blood iron decreased [Unknown]
  - Fibromyalgia [Unknown]
  - Urticaria [Unknown]
  - Arthralgia [Unknown]
  - Rash [Unknown]
